FAERS Safety Report 14929925 (Version 1)
Quarter: 2018Q2

REPORT INFORMATION
  Report Type: Report from Study
  Country: US (occurrence: US)
  Receive Date: 20180523
  Receipt Date: 20180523
  Transmission Date: 20180711
  Serious: No
  Sender: FDA-Public Use
  Company Number: US-AMGEN-USASL2018068553

PATIENT
  Age: 54 Year
  Sex: Male

DRUGS (1)
  1. ENBREL [Suspect]
     Active Substance: ETANERCEPT
     Indication: ANKYLOSING SPONDYLITIS
     Dosage: UNK UNK, QWK
     Route: 065
     Dates: end: 201712

REACTIONS (7)
  - Neck pain [Unknown]
  - Eating disorder [Unknown]
  - Arthralgia [Unknown]
  - Oral discomfort [Unknown]
  - Rash generalised [Unknown]
  - Back pain [Unknown]
  - Pain in extremity [Unknown]
